FAERS Safety Report 4704605-X (Version None)
Quarter: 2005Q2

REPORT INFORMATION
  Report Type: 
  Country: None (occurrence: None)
  Receive Date: 20050628
  Receipt Date: 20050615
  Transmission Date: 20051028
  Serious: Yes (Life-Threatening)
  Sender: FDA-Public Use
  Company Number: 05H-066-0300437-00

PATIENT
  Age: 76 Year
  Sex: Male

DRUGS (9)
  1. HEPARIN SODIUM [Suspect]
     Indication: ANTICOAGULANT THERAPY
     Dosage: 7500 IU, ONCE, INTRAVENOUS; 3000 IU, ONCE, INTRAVENOUS
  2. HEPARIN SODIUM [Suspect]
     Indication: ANTICOAGULANT THERAPY
  3. ASPIRIN [Concomitant]
  4. STATIN [Concomitant]
  5. ANGIOTENSIN CONVERTING ENZYME INHIBITORS (ACE INHIBITOR NOS) [Concomitant]
  6. BETA BLOCKERS (BETA BLOCKING AGENTS) [Concomitant]
  7. NITRATES (ORGANIC NITRATES) [Concomitant]
  8. HYPOGLYCEMICS [Concomitant]
  9. CLOPIDOGREL BISULFATE [Concomitant]

REACTIONS (10)
  - ARTERIAL OCCLUSIVE DISEASE [None]
  - ARTERIAL THROMBOSIS [None]
  - CARDIAC ARREST [None]
  - CHEST PAIN [None]
  - CORONARY ARTERY OCCLUSION [None]
  - CORONARY ARTERY STENOSIS [None]
  - CORONARY ARTERY THROMBOSIS [None]
  - ELECTROCARDIOGRAM ST SEGMENT ELEVATION [None]
  - HEPARIN-INDUCED THROMBOCYTOPENIA [None]
  - VENTRICULAR TACHYCARDIA [None]
